FAERS Safety Report 9199296 (Version 1)
Quarter: 2013Q1

REPORT INFORMATION
  Report Type: Spontaneous
  Country: US (occurrence: None)
  Receive Date: 20130325
  Receipt Date: 20130325
  Transmission Date: 20140127
  Serious: Yes (Other)
  Sender: FDA-Public Use
  Company Number: 2012US-004579

PATIENT
  Age: 69 Year
  Sex: Male
  Weight: 101 kg

DRUGS (28)
  1. OMONTYS (PEGINESATIDE) SOLUTION FOR INJECTION [Suspect]
     Indication: NEPHROGENIC ANAEMIA
     Route: 042
     Dates: start: 20130201, end: 20130201
  2. TACROLIMUS (TACROLIMUS) [Concomitant]
  3. HEPARIN (HEPARIN) [Concomitant]
  4. HEPARIN (HEPARIN) [Concomitant]
  5. BODY QUEST ICE CREAM [Concomitant]
  6. VENOFER [Concomitant]
  7. ZEMPLAR (PARICALCITOL) [Concomitant]
  8. HYDROCODONE (HYDROCODONE) [Concomitant]
  9. LORAZEPAM (LORAZEPAM) [Concomitant]
  10. METHOCARBAMOL (METHOCARBAMOL) [Concomitant]
  11. CLONAZEPAM (CLONAZEPAM) [Concomitant]
  12. PRADAXA (DABIGATRAN ETEXILATE MESILATE) [Concomitant]
  13. FLOMAX (TAMSULOSIN HYDROCHLORIDE) [Concomitant]
  14. LEVOTHYROXINE (LEVOTHYROXINE) [Concomitant]
  15. LANTUS (INSULIN GLARGINE) [Concomitant]
  16. ASPIRIN (ACETYLSALICYLIC ACID) [Concomitant]
  17. CARVEDILOL (CARVEDILOL) [Concomitant]
  18. SODIUM BICARBONATE (SODIUM BICARBONATE) [Concomitant]
  19. LASIX (FUROSEMIDE) [Concomitant]
  20. OXYGEN (OXYGEN) [Concomitant]
  21. REQUIP (ROPINIROLE HYDROCHLORIDE) [Concomitant]
  22. TEMAZEPAM (TEMAZEPAM) [Concomitant]
  23. ATARAX (HYDROXYZINE) [Concomitant]
  24. AMBIEN (ZOLPIDEM TARTRATE) [Concomitant]
  25. OMEPRAZOLE (OMEPRAZOLE) [Concomitant]
  26. FENOFIBRATE (FENOFIBRATE) [Concomitant]
  27. LEVAQUIN (LEVOFLOXACIN) [Concomitant]
  28. EPOGEN (EPOETIN ALFA) [Concomitant]

REACTIONS (8)
  - Somnolence [None]
  - Disorientation [None]
  - Aggression [None]
  - Cold sweat [None]
  - Dyspnoea [None]
  - Blood pressure decreased [None]
  - Loss of consciousness [None]
  - Hypersensitivity [None]
